FAERS Safety Report 13697004 (Version 1)
Quarter: 2017Q2

REPORT INFORMATION
  Report Type: Spontaneous
  Country: US (occurrence: US)
  Receive Date: 20170627
  Receipt Date: 20170627
  Transmission Date: 20170830
  Serious: Yes (Life-Threatening, Hospitalization, Other)
  Sender: FDA-Public Use
  Company Number: None

PATIENT
  Sex: Female

DRUGS (1)
  1. NEURONTIN [Suspect]
     Active Substance: GABAPENTIN
     Indication: FLANK PAIN
     Dosage: ?          OTHER STRENGTH:MG;?
     Route: 048
     Dates: start: 20170522, end: 20170605

REACTIONS (2)
  - Laceration [None]
  - Mental disorder [None]

NARRATIVE: CASE EVENT DATE: 20170606
